FAERS Safety Report 6079057-0 (Version None)
Quarter: 2009Q1

REPORT INFORMATION
  Report Type: 
  Country: None (occurrence: None)
  Receive Date: 20090216
  Receipt Date: 20090203
  Transmission Date: 20090719
  Serious: Yes (Other)
  Sender: FDA-Public Use
  Company Number: AT-ROCHE-435704

PATIENT
  Sex: Male
  Weight: 80 kg

DRUGS (2)
  1. PEG-INTERFERON ALFA 2A (RO 25-8310) [Suspect]
     Route: 058
     Dates: start: 20060207, end: 20060207
  2. RIBAVIRIN [Suspect]
     Route: 048
     Dates: end: 20060207

REACTIONS (1)
  - LOSS OF CONSCIOUSNESS [None]
